FAERS Safety Report 17692660 (Version 1)
Quarter: 2020Q2

REPORT INFORMATION
  Report Type: Report from Study
  Country: US (occurrence: US)
  Receive Date: 20200422
  Receipt Date: 20200422
  Transmission Date: 20200714
  Serious: Yes (Other)
  Sender: FDA-Public Use
  Company Number: US-ELI_LILLY_AND_COMPANY-US202003012312

PATIENT
  Age: 43 Year
  Sex: Male
  Weight: 66.67 kg

DRUGS (1)
  1. OLANZAPINE PAMOATE [Suspect]
     Active Substance: OLANZAPINE PAMOATE
     Indication: SCHIZOAFFECTIVE DISORDER
     Dosage: 300 MG, 2/M
     Route: 030
     Dates: start: 20200304

REACTIONS (4)
  - Post-injection delirium sedation syndrome [Recovered/Resolved]
  - Sedation [Not Recovered/Not Resolved]
  - Somnolence [Recovered/Resolved]
  - Post-injection delirium sedation syndrome [Not Recovered/Not Resolved]

NARRATIVE: CASE EVENT DATE: 20200318
